FAERS Safety Report 5783067-8 (Version None)
Quarter: 2008Q2

REPORT INFORMATION
  Report Type: 
  Country: None (occurrence: None)
  Receive Date: 20080624
  Receipt Date: 20080617
  Transmission Date: 20081010
  Serious: Yes (Other)
  Sender: FDA-Public Use
  Company Number: US-ALLERGAN-0807308US

PATIENT
  Sex: Female

DRUGS (9)
  1. BOTOX [Suspect]
     Indication: PAIN
     Dosage: UNK, SINGLE
     Route: 030
     Dates: start: 20080414, end: 20080414
  2. BOTOX [Suspect]
     Indication: MUSCLE RIGIDITY
  3. SYNTHROID [Concomitant]
  4. DIOVAN [Concomitant]
  5. VERAPAMIL [Concomitant]
  6. FEMARA [Concomitant]
  7. LEXAPRO [Concomitant]
  8. ADVAIR DISKUS 100/50 [Concomitant]
  9. SPIRIVA [Concomitant]

REACTIONS (5)
  - AORTIC VALVE INCOMPETENCE [None]
  - ATELECTASIS [None]
  - FATIGUE [None]
  - PULMONARY HYPERTENSION [None]
  - REGURGITATION [None]
